FAERS Safety Report 10246590 (Version 1)
Quarter: 2014Q2

REPORT INFORMATION
  Report Type: Spontaneous
  Country: GB (occurrence: GB)
  Receive Date: 20140619
  Receipt Date: 20140619
  Transmission Date: 20141212
  Serious: Yes (Hospitalization)
  Sender: FDA-Public Use
  Company Number: GB-SA-2014SA076594

PATIENT
  Age: 70 Year
  Sex: Male

DRUGS (1)
  1. BCG FOR IMMUNOTHERAPY [Suspect]
     Indication: BLADDER CANCER
     Route: 065

REACTIONS (14)
  - Histiocytosis haematophagic [Unknown]
  - Malaise [Unknown]
  - Pyrexia [Unknown]
  - Decreased appetite [Unknown]
  - Lethargy [Unknown]
  - Hypoaesthesia [Unknown]
  - Hepatic steatosis [Unknown]
  - Splenomegaly [Unknown]
  - Atelectasis [Unknown]
  - Pleural effusion [Unknown]
  - Productive cough [Unknown]
  - Cholelithiasis [Unknown]
  - Duodenal ulcer haemorrhage [Unknown]
  - Haematemesis [Unknown]
